FAERS Safety Report 8491958-2 (Version None)
Quarter: 2012Q3

REPORT INFORMATION
  Report Type: 
  Country: None (occurrence: None)
  Receive Date: 20120706
  Receipt Date: 20120626
  Transmission Date: 20120928
  Serious: Yes (Hospitalization)
  Sender: FDA-Public Use
  Company Number: FR-SANOFI-AVENTIS-2012SA045602

PATIENT
  Age: 67 Year
  Sex: Male

DRUGS (15)
  1. LASIX [Suspect]
     Route: 048
     Dates: start: 20120217
  2. LYRICA [Suspect]
     Route: 048
     Dates: start: 20120217
  3. IMURAN [Suspect]
     Route: 048
     Dates: start: 20120302
  4. ACTONEL [Suspect]
     Route: 048
     Dates: start: 20120302
  5. CALCIDOSE VITAMINE D [Suspect]
     Route: 048
     Dates: start: 20120302
  6. BISOPROLOL FUMARATE [Suspect]
     Route: 048
  7. ALFUZOSIN HCL [Suspect]
     Route: 048
     Dates: start: 20120217
  8. PREDNISONE TAB [Suspect]
     Dosage: 30 MG PER DAY WITH DOSAGE DECREASED AT 5 MG EVERY 10 DAYS UP TO 10 MG DAILY
     Route: 048
     Dates: start: 20120302
  9. CEFTRIAXONE [Interacting]
     Indication: SEPTIC SHOCK
     Route: 042
     Dates: start: 20120312
  10. COUMADIN [Suspect]
     Route: 048
     Dates: start: 20050101, end: 20120314
  11. BUDESONIDE/FORMOTEROL FUMARATE [Suspect]
     Route: 055
  12. ATORVASTATIN [Suspect]
     Route: 048
     Dates: start: 20120217
  13. ROVAMYCINE [Interacting]
     Indication: SEPTIC SHOCK
     Route: 042
     Dates: start: 20120312, end: 20120316
  14. MULTI-VITAMINS [Suspect]
     Route: 048
     Dates: start: 20120217
  15. POTASSIUM CHLORIDE [Suspect]
     Indication: HYPOKALAEMIA
     Route: 048
     Dates: start: 20120217

REACTIONS (2)
  - DRUG INTERACTION [None]
  - ABDOMINAL WALL HAEMATOMA [None]
